FAERS Safety Report 19588117 (Version 2)
Quarter: 2021Q3

REPORT INFORMATION
  Report Type: Spontaneous
  Country: JP (occurrence: JP)
  Receive Date: 20210721
  Receipt Date: 20210730
  Transmission Date: 20211014
  Serious: Yes (Other)
  Sender: FDA-Public Use
  Company Number: JP-GLAXOSMITHKLINE-JP2021135927

PATIENT
  Age: 5 Decade
  Sex: Female

DRUGS (6)
  1. OLOPATADINE HYDROCHLORIDE. [Concomitant]
     Active Substance: OLOPATADINE HYDROCHLORIDE
     Indication: ASTHMA
     Dosage: 5 MG, BID
     Dates: start: 20191223
  2. SERETIDE [Suspect]
     Active Substance: FLUTICASONE PROPIONATE\SALMETEROL XINAFOATE
     Dosage: UNK
     Route: 055
     Dates: start: 20210621
  3. MONTELUKAST SODIUM TABLET [Concomitant]
     Active Substance: MONTELUKAST SODIUM
     Indication: ASTHMA
     Dosage: 10 MG, QD
     Dates: start: 20191223
  4. RELVAR ELLIPTA [Suspect]
     Active Substance: FLUTICASONE FUROATE\VILANTEROL TRIFENATATE
     Indication: ASTHMA
     Dosage: 200 ?G, QD, 1 INHALATION
     Route: 055
     Dates: start: 20210614, end: 20210621
  5. SERETIDE [Suspect]
     Active Substance: FLUTICASONE PROPIONATE\SALMETEROL XINAFOATE
     Indication: ASTHMA
     Dosage: 72.5 ?G, BID, 1 INHALATION PER DOSE
     Route: 055
     Dates: start: 20191223, end: 20210614
  6. AMLODIPINE BESILATE [Concomitant]
     Active Substance: AMLODIPINE BESYLATE
     Indication: HYPERTENSION
     Dosage: 5 MG, QD
     Dates: start: 20191223

REACTIONS (4)
  - Feeling abnormal [Not Recovered/Not Resolved]
  - Heterotaxia [Unknown]
  - Heart rate abnormal [Unknown]
  - Cardiac hypertrophy [Unknown]

NARRATIVE: CASE EVENT DATE: 20210614
